FAERS Safety Report 4707487-5 (Version None)
Quarter: 2005Q3

REPORT INFORMATION
  Report Type: 
  Country: None (occurrence: None)
  Receive Date: 20050706
  Receipt Date: 20050630
  Transmission Date: 20060218
  Serious: Yes (Life-Threatening, Other)
  Sender: FDA-Public Use
  Company Number: UG-GLAXOSMITHKLINE-B0386345A

PATIENT
  Age: 30 Year
  Sex: Female
  Weight: 54.2 kg

DRUGS (4)
  1. TRIZIVIR [Suspect]
     Indication: HIV INFECTION
     Dosage: 1TAB TWICE PER DAY
     Route: 048
     Dates: start: 20050418
  2. RIFAMPICIN [Concomitant]
     Dosage: 600MG PER DAY
  3. ISONIAZID [Concomitant]
     Dosage: 300MG PER DAY
  4. PYRIDOXINE HCL [Concomitant]
     Dosage: 50MG PER DAY

REACTIONS (5)
  - ANOREXIA [None]
  - PRODUCTIVE COUGH [None]
  - SEBORRHOEIC DERMATITIS [None]
  - SQUAMOUS CELL CARCINOMA [None]
  - WEIGHT DECREASED [None]
